FAERS Safety Report 8797741 (Version 1)
Quarter: 2012Q4

REPORT INFORMATION
  Report Type: Spontaneous
  Country: US (occurrence: None)
  Receive Date: 20120917
  Receipt Date: 20120917
  Transmission Date: 20130627
  Serious: Yes (Hospitalization)
  Sender: FDA-Public Use
  Company Number: None

PATIENT
  Age: 8 Year
  Sex: Female
  Weight: 54.1 kg

DRUGS (1)
  1. WINRHO SDF [Suspect]
     Indication: IDIOPATHIC THROMBOCYTOPENIC PURPURA
     Route: 042
     Dates: start: 20120901, end: 20120901

REACTIONS (8)
  - Chills [None]
  - Abdominal pain [None]
  - Body temperature increased [None]
  - Haematuria [None]
  - Anaemia [None]
  - Peritoneal dialysis [None]
  - Renal tubular disorder [None]
  - Device leakage [None]
